FAERS Safety Report 13532643 (Version 1)
Quarter: 2017Q2

REPORT INFORMATION
  Report Type: Spontaneous
  Country: US (occurrence: US)
  Receive Date: 20170510
  Receipt Date: 20170510
  Transmission Date: 20170830
  Serious: Yes (Hospitalization)
  Sender: FDA-Public Use
  Company Number: US-PFIZER INC-2017098929

PATIENT
  Age: 87 Year
  Sex: Male

DRUGS (2)
  1. PREPARATION H MEDICATED WIPES [Suspect]
     Active Substance: WITCH HAZEL
     Dosage: UNK
     Dates: end: 2017
  2. PREPARATION H MEDICATED WIPES [Suspect]
     Active Substance: WITCH HAZEL
     Dosage: 20 MG, 1X/DAY
     Dates: start: 20170310

REACTIONS (3)
  - Drug ineffective [Not Recovered/Not Resolved]
  - Poor quality drug administered [Not Recovered/Not Resolved]
  - Product physical issue [Not Recovered/Not Resolved]

NARRATIVE: CASE EVENT DATE: 2017
